FAERS Safety Report 8446919-6 (Version None)
Quarter: 2012Q2

REPORT INFORMATION
  Report Type: 
  Country: None (occurrence: None)
  Receive Date: 20120613
  Receipt Date: 20120613
  Transmission Date: 20120825
  Serious: Yes (Other)
  Sender: FDA-Public Use
  Company Number: None

PATIENT
  Age: 48 Year
  Sex: Female
  Weight: 72.5755 kg

DRUGS (1)
  1. AGGRENOX [Suspect]
     Indication: CEREBROVASCULAR ACCIDENT
     Dosage: 25MG/200 MG, 2 X DAILY, PO
     Route: 048
     Dates: start: 20081014, end: 20120612

REACTIONS (7)
  - ASTHENIA [None]
  - INFECTION SUSCEPTIBILITY INCREASED [None]
  - TOOTH INFECTION [None]
  - GINGIVAL DISORDER [None]
  - POST PROCEDURAL HAEMORRHAGE [None]
  - MENORRHAGIA [None]
  - LOOSE TOOTH [None]
